FAERS Safety Report 12409494 (Version 5)
Quarter: 2017Q2

REPORT INFORMATION
  Report Type: Report from Study
  Country: None (occurrence: DE)
  Receive Date: 20160526
  Receipt Date: 20170427
  Transmission Date: 20170830
  Serious: Yes (Death, Hospitalization, Other)
  Sender: FDA-Public Use
  Company Number: DE-ABBVIE-15K-062-1481758-00

PATIENT
  Age: 65 Year
  Sex: Male
  Weight: 117 kg

DRUGS (12)
  1. AMPHOMORONAL [Concomitant]
     Indication: FAT EMBOLISM
     Dosage: ONE PIPETTE
  2. ASPIRIN. [Concomitant]
     Active Substance: ASPIRIN
     Indication: PRODUCT USED FOR UNKNOWN INDICATION
     Dates: end: 201511
  3. NAFTILONG [Concomitant]
     Active Substance: NAFRONYL OXALATE
     Indication: PRODUCT USED FOR UNKNOWN INDICATION
  4. PANTOPRAZOLE [Concomitant]
     Active Substance: PANTOPRAZOLE
     Indication: PRODUCT USED FOR UNKNOWN INDICATION
  5. ALLOPURINOL. [Concomitant]
     Active Substance: ALLOPURINOL
     Indication: PRODUCT USED FOR UNKNOWN INDICATION
  6. LANTUS [Concomitant]
     Active Substance: INSULIN GLARGINE
     Indication: PRODUCT USED FOR UNKNOWN INDICATION
  7. HUMIRA [Suspect]
     Active Substance: ADALIMUMAB
     Indication: PSORIASIS
     Route: 058
     Dates: start: 20121220, end: 20140815
  8. METHOTREXATE. [Suspect]
     Active Substance: METHOTREXATE
     Indication: PSORIASIS
     Route: 065
     Dates: start: 20120123, end: 20121106
  9. AMPHOMORONAL [Concomitant]
     Indication: PROPHYLAXIS
  10. METHOTREXATE. [Suspect]
     Active Substance: METHOTREXATE
     Route: 065
     Dates: start: 20130627, end: 20141023
  11. STELARA [Suspect]
     Active Substance: USTEKINUMAB
     Indication: PSORIASIS
     Route: 058
     Dates: start: 20141124, end: 20150709
  12. DEXAMETHASONE. [Concomitant]
     Active Substance: DEXAMETHASONE
     Indication: PRODUCT USED FOR UNKNOWN INDICATION

REACTIONS (40)
  - Bedridden [Unknown]
  - Bladder hypertrophy [Unknown]
  - Lumbar vertebral fracture [Unknown]
  - Fatigue [Unknown]
  - Inflammatory marker increased [Recovering/Resolving]
  - Hypokalaemia [Recovering/Resolving]
  - Enterococcal infection [Unknown]
  - Metastases to liver [Fatal]
  - Spinal instability [Unknown]
  - Bone marrow toxicity [Recovering/Resolving]
  - Pleural effusion [Recovering/Resolving]
  - Dysarthria [Unknown]
  - Scapula fracture [Unknown]
  - Metastases to lymph nodes [Recovering/Resolving]
  - Neuroendocrine carcinoma metastatic [Recovering/Resolving]
  - Lumbar vertebral fracture [Unknown]
  - Febrile neutropenia [Unknown]
  - Anaemia [Unknown]
  - Spinal osteoarthritis [Unknown]
  - Oedema mucosal [Unknown]
  - Eyelid ptosis [Unknown]
  - Diabetic metabolic decompensation [Unknown]
  - Osteochondrosis [Unknown]
  - Lung hypoinflation [Unknown]
  - Acquired diaphragmatic eventration [Unknown]
  - Haemoglobin decreased [Unknown]
  - Dehydration [Unknown]
  - Klebsiella infection [Unknown]
  - Neuroendocrine carcinoma metastatic [Fatal]
  - Hypoventilation [Unknown]
  - Thrombocytopenia [Unknown]
  - Pancytopenia [Recovering/Resolving]
  - Proteus test positive [Unknown]
  - Hypocalcaemia [Unknown]
  - Disorientation [Unknown]
  - Leukopenia [Unknown]
  - Hypomagnesaemia [Unknown]
  - General physical health deterioration [Recovering/Resolving]
  - Tachycardia [Unknown]
  - Oedema peripheral [Unknown]

NARRATIVE: CASE EVENT DATE: 20150831
